FAERS Safety Report 7878756-5 (Version None)
Quarter: 2011Q4

REPORT INFORMATION
  Report Type: 
  Country: None (occurrence: None)
  Receive Date: 20111021
  Receipt Date: 20110722
  Transmission Date: 20120403
  Serious: No
  Sender: FDA-Public Use
  Company Number: US-004694

PATIENT
  Sex: Male
  Weight: 86.1834 kg

DRUGS (11)
  1. FLOMAX [Concomitant]
  2. NORVASC [Concomitant]
  3. ASPIRIN [Concomitant]
  4. ALLOPURINOL [Concomitant]
  5. HYTRIN [Concomitant]
  6. DEGARELIX (240 MG, 80 MG) [Suspect]
     Indication: PROSTATE CANCER
     Dosage: (240 MG 1X SUBCUTANEOUS) ; (80 MG 1X/MONTH SUBCUTANEOUS)
     Route: 058
     Dates: start: 20110114, end: 20110114
  7. DEGARELIX (240 MG, 80 MG) [Suspect]
     Indication: PROSTATE CANCER
     Dosage: (240 MG 1X SUBCUTANEOUS) ; (80 MG 1X/MONTH SUBCUTANEOUS)
     Route: 058
     Dates: start: 20110216, end: 20110216
  8. METOPROLOL HEXAL [Concomitant]
  9. TOPROL-XL [Concomitant]
  10. FISH OIL [Concomitant]
  11. ASPIRIN [Concomitant]

REACTIONS (10)
  - INJECTION SITE ERYTHEMA [None]
  - HYPERHIDROSIS [None]
  - INJECTION SITE DISCOMFORT [None]
  - INJECTION SITE PAIN [None]
  - HOT FLUSH [None]
  - FEELING HOT [None]
  - BACK PAIN [None]
  - INJECTION SITE INDURATION [None]
  - ASTHENIA [None]
  - PAIN [None]
